FAERS Safety Report 7157146-7 (Version None)
Quarter: 2010Q4

REPORT INFORMATION
  Report Type: 
  Country: None (occurrence: None)
  Receive Date: 20101214
  Receipt Date: 20091215
  Transmission Date: 20110411
  Serious: No
  Sender: FDA-Public Use
  Company Number: US-ASTRAZENECA-2009SE32243

PATIENT
  Age: 76 Year
  Sex: Female
  Weight: 68.9 kg

DRUGS (3)
  1. CRESTOR [Suspect]
     Route: 048
     Dates: start: 20091014
  2. BETA BLOCKER [Concomitant]
  3. FOSAMAX [Concomitant]

REACTIONS (3)
  - INCONTINENCE [None]
  - MUSCULAR WEAKNESS [None]
  - OEDEMA PERIPHERAL [None]
